FAERS Safety Report 25038481 (Version 3)
Quarter: 2025Q2

REPORT INFORMATION
  Report Type: Report from Study
  Country: US (occurrence: US)
  Receive Date: 20250304
  Receipt Date: 20250623
  Transmission Date: 20250716
  Serious: Yes (Hospitalization, Other)
  Sender: UCB
  Company Number: US-UCBSA-2025011577

PATIENT
  Age: 17 Year
  Sex: Female
  Weight: 32.3 kg

DRUGS (2)
  1. FINTEPLA [Suspect]
     Active Substance: FENFLURAMINE
     Indication: Lennox-Gastaut syndrome
     Dosage: 6 MILLILITER, 2X/DAY (BID)
     Dates: start: 20211229
  2. FINTEPLA [Suspect]
     Active Substance: FENFLURAMINE
     Dates: start: 20231122

REACTIONS (5)
  - Mitral valve incompetence [Unknown]
  - Pneumonia [Recovered/Resolved]
  - Myoclonic epilepsy [Not Recovered/Not Resolved]
  - Left ventricular dilatation [Unknown]
  - Left ventricular dysfunction [Unknown]

NARRATIVE: CASE EVENT DATE: 20250120
